FAERS Safety Report 8573695 (Version 8)
Quarter: 2016Q2

REPORT INFORMATION
  Report Type: Report from Study
  Country: PL (occurrence: PL)
  Receive Date: 20120522
  Receipt Date: 20160413
  Transmission Date: 20160815
  Serious: Yes (Hospitalization)
  Sender: FDA-Public Use
  Company Number: PL-ROCHE-1066532

PATIENT
  Age: 65 Year
  Sex: Female
  Weight: 72 kg

DRUGS (19)
  1. INSULINUM HUMANUM [Concomitant]
     Dosage: 22 UNITS
     Route: 058
     Dates: start: 2003, end: 20120429
  2. INSULINUM HUMANUM [Concomitant]
     Dosage: 10 UNITS
     Route: 058
     Dates: start: 20120430, end: 20120510
  3. METFORMIN [Concomitant]
     Active Substance: METFORMIN HYDROCHLORIDE
     Route: 048
     Dates: start: 20120430, end: 20120514
  4. INSULINUM HUMANUM [Concomitant]
     Dosage: 24 UNITS
     Route: 058
     Dates: start: 20120430, end: 20120506
  5. METFORMIN [Concomitant]
     Active Substance: METFORMIN HYDROCHLORIDE
     Route: 048
     Dates: start: 2000, end: 20120429
  6. RAMIPRIL. [Concomitant]
     Active Substance: RAMIPRIL
     Route: 048
     Dates: start: 2007, end: 20120429
  7. RAMIPRIL. [Concomitant]
     Active Substance: RAMIPRIL
     Route: 048
     Dates: start: 20120430, end: 20120506
  8. ACARBOSUM [Concomitant]
     Route: 048
     Dates: start: 2000, end: 20120429
  9. SULFATHIAZOLUM NATRICUM [Concomitant]
     Route: 061
     Dates: start: 20120514, end: 20120831
  10. INSULINUM HUMANUM [Concomitant]
     Dosage: 12 UNITS
     Route: 058
     Dates: start: 20120507, end: 20120513
  11. ACARBOSUM [Concomitant]
     Route: 048
     Dates: start: 20120430, end: 20120514
  12. AMMONII BITUMINOSULFONAS [Concomitant]
     Route: 061
     Dates: start: 20120514, end: 20120831
  13. METFORMIN HYDROCHLORIDE. [Concomitant]
     Active Substance: METFORMIN HYDROCHLORIDE
     Route: 065
  14. INSULINUM HUMANUM [Concomitant]
     Dosage: 16 UNITS
     Route: 058
     Dates: start: 20120507, end: 20120513
  15. TOCILIZUMAB [Suspect]
     Active Substance: TOCILIZUMAB
     Indication: RHEUMATOID ARTHRITIS
     Dosage: MOST RECENT DOSE:19 APR 2012, LAST DOSE TAKE: 162 MG
     Route: 058
     Dates: start: 20120223
  16. INSULINUM HUMANUM [Concomitant]
     Dosage: 12 UNITS
     Route: 058
     Dates: start: 20120430, end: 20120506
  17. BISOPROLOLI FUMARAS [Concomitant]
     Route: 048
     Dates: start: 2007, end: 20120429
  18. TOCILIZUMAB [Suspect]
     Active Substance: TOCILIZUMAB
     Indication: RHEUMATOID ARTHRITIS
     Dosage: MOST RECENT DOSE:09 FEB 2012
     Route: 058
     Dates: start: 20110908
  19. INSULINUM HUMANUM [Concomitant]
     Dosage: 18 UNITS
     Route: 058
     Dates: start: 2003, end: 20120429

REACTIONS (1)
  - Pyoderma gangrenosum [Recovered/Resolved]

NARRATIVE: CASE EVENT DATE: 20120425
